FAERS Safety Report 15338775 (Version 1)
Quarter: 2018Q3

REPORT INFORMATION
  Report Type: Spontaneous
  Country: US (occurrence: US)
  Receive Date: 20180831
  Receipt Date: 20180831
  Transmission Date: 20181010
  Serious: No
  Sender: FDA-Public Use
  Company Number: US-MYLANLABS-2018M1062796

PATIENT
  Age: 32 Year
  Sex: Female
  Weight: 64 kg

DRUGS (1)
  1. ESTRADIOL TRANSDERMAL SYSTEM [Suspect]
     Active Substance: ESTRADIOL
     Indication: HYSTERECTOMY
     Dosage: UNK
     Route: 062
     Dates: start: 20160801

REACTIONS (4)
  - Application site erythema [Unknown]
  - Application site pruritus [Unknown]
  - Product adhesion issue [Unknown]
  - Application site irritation [Unknown]
